FAERS Safety Report 10228343 (Version 1)
Quarter: 2014Q2

REPORT INFORMATION
  Report Type: Spontaneous
  Country: US (occurrence: None)
  Receive Date: 20140609
  Receipt Date: 20140609
  Transmission Date: 20141212
  Serious: Yes (Disabling)
  Sender: FDA-Public Use
  Company Number: None

PATIENT
  Age: 30 Year
  Sex: Female
  Weight: 50.8 kg

DRUGS (1)
  1. AMPHETAMINE [Suspect]
     Indication: ATTENTION DEFICIT/HYPERACTIVITY DISORDER
     Dosage: 1 PER DAY ONCE DAILY TAKEN BY MOUTH
     Route: 048
     Dates: start: 20140424, end: 20140607

REACTIONS (3)
  - Headache [None]
  - Blood pressure increased [None]
  - Feeling abnormal [None]
